FAERS Safety Report 24791666 (Version 1)
Quarter: 2024Q4

REPORT INFORMATION
  Report Type: Spontaneous
  Country: US (occurrence: US)
  Receive Date: 20241231
  Receipt Date: 20241231
  Transmission Date: 20250115
  Serious: Yes (Death, Other)
  Sender: AMGEN
  Company Number: US-AMGEN-USASP2024252029

PATIENT

DRUGS (7)
  1. PREDNISONE [Suspect]
     Active Substance: PREDNISONE
     Indication: Acute lymphocytic leukaemia
     Dosage: UNK
     Route: 065
  2. CYCLOPHOSPHAMIDE [Concomitant]
     Active Substance: CYCLOPHOSPHAMIDE
     Indication: Acute lymphocytic leukaemia
     Dosage: UNK
     Route: 065
  3. VINCRISTINE [Concomitant]
     Active Substance: VINCRISTINE
     Indication: Acute lymphocytic leukaemia
     Dosage: UNK
     Route: 065
  4. DOXORUBICIN [Concomitant]
     Active Substance: DOXORUBICIN
     Indication: Acute lymphocytic leukaemia
     Dosage: UNK
     Route: 065
  5. DEXAMETHASONE [Concomitant]
     Active Substance: DEXAMETHASONE
     Indication: Acute lymphocytic leukaemia
     Dosage: UNK
     Route: 065
  6. OFATUMUMAB [Concomitant]
     Active Substance: OFATUMUMAB
     Indication: Acute lymphocytic leukaemia
     Dosage: UNK
     Route: 065
  7. CYTARABINE\METHOTREXATE [Concomitant]
     Active Substance: CYTARABINE\METHOTREXATE
     Indication: Acute lymphocytic leukaemia
     Dosage: UNK
     Route: 065

REACTIONS (13)
  - Febrile neutropenia [Unknown]
  - Acute lymphocytic leukaemia recurrent [Fatal]
  - Sepsis [Fatal]
  - Haemorrhage intracranial [Fatal]
  - Multiple organ dysfunction syndrome [Fatal]
  - Death [Fatal]
  - Neuropathy peripheral [Unknown]
  - Embolism [Unknown]
  - Liver function test increased [Unknown]
  - Blood bilirubin increased [Unknown]
  - Nausea [Unknown]
  - Vomiting [Unknown]
  - Mucosal inflammation [Unknown]
